FAERS Safety Report 7529923-1 (Version None)
Quarter: 2011Q2

REPORT INFORMATION
  Report Type: 
  Country: None (occurrence: None)
  Receive Date: 20110531
  Receipt Date: 20110526
  Transmission Date: 20111010
  Serious: Yes (Hospitalization, Other)
  Sender: FDA-Public Use
  Company Number: 2010SP054431

PATIENT

DRUGS (1)
  1. NUVARING [Suspect]
     Indication: MENSTRUAL DISORDER
     Dates: start: 20040301, end: 20050301

REACTIONS (15)
  - DEEP VEIN THROMBOSIS [None]
  - PNEUMONIA [None]
  - VENOUS INSUFFICIENCY [None]
  - PHLEBITIS [None]
  - INTERNATIONAL NORMALISED RATIO DECREASED [None]
  - STASIS DERMATITIS [None]
  - LYMPHOEDEMA [None]
  - FLUID RETENTION [None]
  - POSTMENOPAUSAL HAEMORRHAGE [None]
  - DIABETES MELLITUS [None]
  - UTERINE POLYP [None]
  - ASTHMA [None]
  - PERIPHERAL VASCULAR DISORDER [None]
  - THROMBOPHLEBITIS [None]
  - PREMATURE MENOPAUSE [None]
